FAERS Safety Report 6297830-0 (Version None)
Quarter: 2009Q3

REPORT INFORMATION
  Report Type: 
  Country: None (occurrence: None)
  Receive Date: 20090805
  Receipt Date: 20090730
  Transmission Date: 20100115
  Serious: Yes (Other)
  Sender: FDA-Public Use
  Company Number: IN-WYE-H08999509

PATIENT
  Sex: Male
  Weight: 70 kg

DRUGS (4)
  1. INOTUZUMAB OZOGAMICIN [Suspect]
     Indication: NON-HODGKIN'S LYMPHOMA
     Route: 042
     Dates: start: 20081001, end: 20090224
  2. METFORMIN [Concomitant]
     Indication: DIABETES MELLITUS
     Route: 048
     Dates: start: 20090225
  3. PROTEIN SUPPLEMENTS [Concomitant]
     Indication: HYPOPROTEINAEMIA
     Dosage: 2 ^1SF^ TDS
     Route: 048
     Dates: start: 20081002
  4. RITUXIMAB/INOTUZUMAB OZOGAMICIN [Suspect]
     Indication: NON-HODGKIN'S LYMPHOMA
     Route: 042
     Dates: start: 20080930, end: 20090223

REACTIONS (1)
  - HYPERBILIRUBINAEMIA [None]
